FAERS Safety Report 12140716 (Version 5)
Quarter: 2020Q3

REPORT INFORMATION
  Report Type: Report from Study
  Country: UA (occurrence: UA)
  Receive Date: 20160303
  Receipt Date: 20170606
  Transmission Date: 20201105
  Serious: Yes (Hospitalization)
  Sender: FDA-Public Use
  Company Number: UA-JNJFOC-20160302365

PATIENT
  Age: 54 Year
  Sex: Male
  Weight: 86.3 kg

DRUGS (11)
  1. NEBILET [Concomitant]
     Active Substance: NEBIVOLOL
     Route: 048
     Dates: start: 20151112
  2. NIMESULIDE [Concomitant]
     Active Substance: NIMESULIDE
     Indication: PSORIATIC ARTHROPATHY
     Route: 048
     Dates: start: 2015
  3. FOLIC ACID. [Concomitant]
     Active Substance: FOLIC ACID
     Indication: ANAEMIA PROPHYLAXIS
     Route: 048
     Dates: start: 20150820
  4. GOLIMUMAB [Suspect]
     Active Substance: GOLIMUMAB
     Indication: PSORIATIC ARTHROPATHY
     Route: 042
     Dates: start: 20150819
  5. METHOTREXATE. [Concomitant]
     Active Substance: METHOTREXATE
     Indication: PSORIATIC ARTHROPATHY
     Route: 048
     Dates: start: 20150422
  6. HEPARIN [Concomitant]
     Active Substance: HEPARIN SODIUM
     Route: 061
     Dates: start: 20160114, end: 20160120
  7. AZILSARTANUM [Concomitant]
     Route: 048
     Dates: start: 20151112
  8. GOLIMUMAB [Suspect]
     Active Substance: GOLIMUMAB
     Route: 042
  9. BERLIPRIL [Concomitant]
     Active Substance: ENALAPRIL MALEATE
     Indication: HYPERTENSION
     Route: 048
     Dates: start: 20150707, end: 20151111
  10. FASTUM [Concomitant]
     Active Substance: KETOPROFEN
     Route: 061
     Dates: start: 20160114, end: 20160120
  11. CAPTOPRES [Concomitant]
     Route: 048

REACTIONS (2)
  - Hypertensive crisis [Recovered/Resolved]
  - Pneumonia [Recovered/Resolved]

NARRATIVE: CASE EVENT DATE: 20160212
